FAERS Safety Report 5842619-7 (Version None)
Quarter: 2008Q3

REPORT INFORMATION
  Report Type: 
  Country: None (occurrence: None)
  Receive Date: 20080812
  Receipt Date: 20080731
  Transmission Date: 20090109
  Serious: Yes (Other)
  Sender: FDA-Public Use
  Company Number: JP-PFIZER INC-2008066680

PATIENT

DRUGS (1)
  1. SOLU-MEDROL [Suspect]
     Dosage: DAILY DOSE:500MG

REACTIONS (1)
  - WHITE BLOOD CELL COUNT INCREASED [None]
